FAERS Safety Report 10076225 (Version 1)
Quarter: 2014Q2

REPORT INFORMATION
  Report Type: Spontaneous
  Country: US (occurrence: None)
  Receive Date: 20140410
  Receipt Date: 20140410
  Transmission Date: 20141212
  Serious: Yes (Other)
  Sender: FDA-Public Use
  Company Number: UTC-046694

PATIENT
  Age: 79 Year
  Sex: Female
  Weight: 77.11 kg

DRUGS (3)
  1. TYVASO [Suspect]
     Indication: PULMONARY ARTERIAL HYPERTENSION
     Route: 055
     Dates: start: 20140321
  2. COUMADIN (WARFARIN SODIUM) [Concomitant]
  3. REVATIO (SILDENAFIL CITRATE) [Concomitant]

REACTIONS (3)
  - International normalised ratio increased [None]
  - Diarrhoea [None]
  - Fatigue [None]
